FAERS Safety Report 5901205-0 (Version None)
Quarter: 2008Q3

REPORT INFORMATION
  Report Type: 
  Country: None (occurrence: None)
  Receive Date: 20080929
  Receipt Date: 20080627
  Transmission Date: 20090109
  Serious: Yes (Hospitalization, Disabling)
  Sender: FDA-Public Use
  Company Number: US-BRISTOL-MYERS SQUIBB COMPANY-14215289

PATIENT
  Age: 44 Year
  Sex: Male

DRUGS (10)
  1. ORENCIA [Suspect]
     Indication: RHEUMATOID ARTHRITIS
     Route: 042
     Dates: start: 20060721, end: 20071005
  2. LISINOPRIL [Concomitant]
  3. PREDNISONE [Concomitant]
  4. BECLOMETHASONE DIPROPIONATE [Concomitant]
  5. LEFLUNOMIDE [Concomitant]
  6. DICLOFENAC [Concomitant]
  7. FOLIC ACID [Concomitant]
  8. OMEPRAZOLE [Concomitant]
  9. VICODIN [Concomitant]
  10. CITALOPRAM HYDROBROMIDE [Concomitant]

REACTIONS (1)
  - STAPHYLOCOCCAL INFECTION [None]
